FAERS Safety Report 7638195-9 (Version None)
Quarter: 2011Q3

REPORT INFORMATION
  Report Type: 
  Country: None (occurrence: None)
  Receive Date: 20110727
  Receipt Date: 20110719
  Transmission Date: 20111222
  Serious: Yes (Other)
  Sender: FDA-Public Use
  Company Number: US-JNJFOC-20100502926

PATIENT
  Sex: Male
  Weight: 29.94 kg

DRUGS (4)
  1. CHILDREN'S TYLENOL SUSPENSION [Suspect]
  2. CHILDREN'S MOTRIN [Suspect]
     Route: 065
  3. CHILDREN'S MOTRIN [Suspect]
     Indication: PYREXIA
     Route: 065
     Dates: start: 20100218
  4. CHILDREN'S TYLENOL SUSPENSION [Suspect]
     Indication: PYREXIA
     Dates: start: 20100218

REACTIONS (6)
  - DYSPNOEA [None]
  - PRODUCT MEASURED POTENCY ISSUE [None]
  - DELIRIUM [None]
  - HEART RATE INCREASED [None]
  - VERTIGO [None]
  - HALLUCINATION [None]
